FAERS Safety Report 7496098-7 (Version None)
Quarter: 2011Q2

REPORT INFORMATION
  Report Type: 
  Country: None (occurrence: None)
  Receive Date: 20110513
  Receipt Date: 20110510
  Transmission Date: 20111010
  Serious: Yes (Hospitalization, Other)
  Sender: FDA-Public Use
  Company Number: 20109114

PATIENT
  Sex: Female

DRUGS (1)
  1. LIORESAL [Suspect]
     Indication: MUSCLE SPASTICITY
     Dosage: 2000 MCG/ML, DAILY, INTRATHECAL; 410 MCG/DAY
     Route: 039

REACTIONS (10)
  - PARAESTHESIA [None]
  - ANXIETY [None]
  - COORDINATION ABNORMAL [None]
  - DRUG WITHDRAWAL SYNDROME [None]
  - MUSCLE SPASTICITY [None]
  - PRURITUS [None]
  - FEELING ABNORMAL [None]
  - UNDERDOSE [None]
  - SKIN DISORDER [None]
  - PRODUCT MEASURED POTENCY ISSUE [None]
